FAERS Safety Report 10048703 (Version 1)
Quarter: 2014Q1

REPORT INFORMATION
  Report Type: Report from Study
  Country: US (occurrence: US)
  Receive Date: 20140331
  Receipt Date: 20140331
  Transmission Date: 20141002
  Serious: Yes (Other)
  Sender: FDA-Public Use
  Company Number: US-VERTEX PHARMACEUTICALS INC-2014-001701

PATIENT
  Age: 58 Year
  Sex: Male

DRUGS (19)
  1. VX-950 (TELAPREVIR) [Suspect]
     Indication: CHRONIC HEPATITIS C
     Dosage: 2250 MG, QD
     Route: 048
     Dates: start: 20130821, end: 20130925
  2. PEGINTERFERON LAMBDA-1A [Suspect]
     Indication: CHRONIC HEPATITIS C
     Dosage: 180 ?G, QW
     Route: 058
     Dates: start: 20130821, end: 20130918
  3. Z-PEGYLATED INTERFERON-2A [Suspect]
     Indication: CHRONIC HEPATITIS C
     Dosage: 180 ?G, QW
     Route: 058
     Dates: start: 20130821, end: 20130918
  4. Z-RIBAVIRIN [Suspect]
     Indication: CHRONIC HEPATITIS C
     Dosage: 1200 MG, QD
     Route: 048
     Dates: start: 20130821, end: 20130925
  5. AMLODIPINE BESYLATE [Concomitant]
     Dosage: UNK
     Route: 065
     Dates: start: 20091007
  6. ALBUTEROL [Concomitant]
     Dosage: UNK
     Route: 065
     Dates: start: 20100410
  7. FISH OIL [Concomitant]
     Dosage: UNK
     Route: 065
     Dates: start: 20100827
  8. BUDESONIDE W/FORMOTEROL FUMARATE [Concomitant]
     Dosage: UNK
     Route: 065
     Dates: start: 20110711
  9. CALCIPOTRIENE [Concomitant]
     Dosage: UNK
     Route: 065
     Dates: start: 20120514
  10. DOCUSATE SODIUM [Concomitant]
     Dosage: UNK
     Route: 065
     Dates: start: 20120518
  11. WITCH HAZEL [Concomitant]
     Dosage: UNK
     Route: 065
     Dates: start: 20120518
  12. HYDROCORTISONE ACETATE W/PRAMOCAINE HCL [Concomitant]
     Dosage: UNK
     Route: 065
     Dates: start: 20120606
  13. MECLIZINE HCL [Concomitant]
     Dosage: UNK
     Route: 065
     Dates: start: 20130413
  14. BUPROPION HCL [Concomitant]
     Dosage: UNK
     Route: 065
     Dates: start: 20130508
  15. LIDOCAINE [Concomitant]
     Dosage: UNK
     Route: 065
     Dates: start: 20130606
  16. CARBOXYMETHYLCELLULOSE SODIUM [Concomitant]
     Dosage: UNK
     Route: 065
     Dates: start: 20130802
  17. TEMAZEPAM [Concomitant]
     Dosage: UNK
     Route: 065
     Dates: start: 20130821
  18. HYDROXYZINE HCL [Concomitant]
     Dosage: UNK
     Route: 065
     Dates: start: 20130827
  19. OATMEAL [Concomitant]
     Dosage: UNK
     Route: 065
     Dates: start: 20130828

REACTIONS (1)
  - Ocular icterus [Not Recovered/Not Resolved]
